FAERS Safety Report 11859348 (Version 1)
Quarter: 2015Q4

REPORT INFORMATION
  Report Type: Not Available
  Country: DE (occurrence: BR)
  Receive Date: 20151221
  Receipt Date: 20151221
  Transmission Date: 20160305
  Serious: Yes (Other)
  Sender: FDA-Public Use
  Company Number: DE-ANIPHARMA-2015-BR-000004

PATIENT
  Age: 13 Year
  Sex: Male
  Weight: 66 kg

DRUGS (1)
  1. FLUVOXAMINE MALEATE 50 MG TABLETS [Suspect]
     Active Substance: FLUVOXAMINE MALEATE
     Dosage: 50-100MG
     Route: 048
     Dates: start: 20150901, end: 20151203

REACTIONS (6)
  - Self-injurious ideation [Unknown]
  - Off label use [Unknown]
  - Physical assault [Unknown]
  - Suicide attempt [Unknown]
  - Withdrawal syndrome [Unknown]
  - Suicidal ideation [Unknown]

NARRATIVE: CASE EVENT DATE: 20151001
